FAERS Safety Report 5350527-3 (Version None)
Quarter: 2007Q2

REPORT INFORMATION
  Report Type: 
  Country: None (occurrence: None)
  Receive Date: 20070608
  Receipt Date: 20070605
  Transmission Date: 20071010
  Serious: Yes (Hospitalization, Disabling, Other)
  Sender: FDA-Public Use
  Company Number: PR-ASTRAZENECA-2007UW06829

PATIENT
  Age: 26304 Day
  Sex: Male

DRUGS (18)
  1. METOPROLOL SUCCINATE [Suspect]
     Route: 048
     Dates: start: 20021114, end: 20070316
  2. METOPROLOL SUCCINATE [Suspect]
     Route: 048
     Dates: start: 20070328, end: 20070402
  3. AZD6140 CODE NOT BROKEN [Suspect]
     Indication: ACUTE CORONARY SYNDROME
     Dates: start: 20070309, end: 20070411
  4. NORTRIPTYLINE HCL [Concomitant]
     Dates: start: 20060530, end: 20070328
  5. SIMVASTATIN [Concomitant]
     Dates: start: 20060818, end: 20070328
  6. SIMVASTATIN [Concomitant]
     Dates: start: 20070503
  7. HUMULIN N [Concomitant]
     Dates: start: 20061031
  8. REGULAR INSULIN [Concomitant]
     Dates: start: 20061028
  9. LISINOPRIL [Concomitant]
     Dates: start: 20060602, end: 20070604
  10. NYSTATIN [Concomitant]
     Dates: start: 20070125
  11. ACETYLSALIC ACID [Concomitant]
     Dates: start: 20070309, end: 20070407
  12. ISOSORBIDE DINITRATE [Concomitant]
     Dates: start: 20070312
  13. LISINOPRIL [Concomitant]
     Route: 048
     Dates: start: 20060602, end: 20070604
  14. ROSUVASTATIN [Concomitant]
     Dates: start: 20070328, end: 20070328
  15. ENOXAPARIN SODIUM [Concomitant]
     Dates: start: 20070309, end: 20070314
  16. FUROSEMIDE [Concomitant]
     Dates: start: 20070309, end: 20070403
  17. OMEPRAZOLE [Concomitant]
     Dates: start: 20070309
  18. HALOPERIDOL [Concomitant]
     Dates: start: 20070313, end: 20070315

REACTIONS (2)
  - PERIPHERAL ISCHAEMIA [None]
  - SKIN NECROSIS [None]
